FAERS Safety Report 6201348-0 (Version None)
Quarter: 2009Q2

REPORT INFORMATION
  Report Type: 
  Country: None (occurrence: None)
  Receive Date: 20090526
  Receipt Date: 20090518
  Transmission Date: 20091009
  Serious: Yes (Other)
  Sender: FDA-Public Use
  Company Number: PHHY2009DE08334

PATIENT
  Sex: Male
  Weight: 89 kg

DRUGS (5)
  1. RASILEZ [Suspect]
     Indication: HYPERTENSION
     Dosage: 150 MG, QD
     Route: 048
     Dates: start: 20081101, end: 20090101
  2. DILATREND [Concomitant]
     Dosage: 12.5 MG/DAY
     Route: 048
     Dates: start: 20070101
  3. BLOPRESS PLUS [Concomitant]
     Dosage: 1 DF/DAY
     Route: 048
     Dates: start: 20070101
  4. SIMVASTATIN [Concomitant]
     Dosage: 5 MG/DAY
     Route: 048
     Dates: start: 20080101
  5. MARCUMAR [Concomitant]
     Dosage: UNK
     Route: 048
     Dates: start: 19850101

REACTIONS (5)
  - HYPERSENSITIVITY [None]
  - OEDEMA PERIPHERAL [None]
  - PHOTOSENSITIVITY REACTION [None]
  - SKIN BURNING SENSATION [None]
  - SKIN DISCOLOURATION [None]
